FAERS Safety Report 12540404 (Version 2)
Quarter: 2016Q3

REPORT INFORMATION
  Report Type: Spontaneous
  Country: US (occurrence: US)
  Receive Date: 20160708
  Receipt Date: 20160929
  Transmission Date: 20161109
  Serious: No
  Sender: FDA-Public Use
  Company Number: US-PFIZER INC-2016299941

PATIENT
  Age: 86 Year
  Sex: Female

DRUGS (2)
  1. IBRANCE [Suspect]
     Active Substance: PALBOCICLIB
     Dosage: 125 MG, UNK
     Dates: start: 20160523
  2. FULVESTRANT [Concomitant]
     Active Substance: FULVESTRANT
     Dosage: UNK
     Route: 030

REACTIONS (2)
  - Fatigue [Unknown]
  - Alopecia [Unknown]

NARRATIVE: CASE EVENT DATE: 201605
